FAERS Safety Report 25527539 (Version 1)
Quarter: 2025Q3

REPORT INFORMATION
  Report Type: Spontaneous
  Country: US (occurrence: US)
  Receive Date: 20250708
  Receipt Date: 20250708
  Transmission Date: 20251020
  Serious: No
  Sender: CSL BEHRING
  Company Number: US-BEH-2025211931

PATIENT
  Age: 7 Year
  Sex: Male

DRUGS (1)
  1. HIZENTRA [Suspect]
     Active Substance: HUMAN IMMUNOGLOBULIN G
     Indication: Primary immunodeficiency syndrome
     Dosage: 30ML OF THE 6G, QW
     Route: 058

REACTIONS (1)
  - Infusion site discharge [Unknown]

NARRATIVE: CASE EVENT DATE: 20250601
